FAERS Safety Report 19501967 (Version 8)
Quarter: 2021Q3

REPORT INFORMATION
  Report Type: Spontaneous
  Country: US (occurrence: US)
  Receive Date: 20210707
  Receipt Date: 20210804
  Transmission Date: 20211014
  Serious: Yes (Hospitalization)
  Sender: FDA-Public Use
  Company Number: US-ALXN-A202107621

PATIENT
  Age: 2 Year
  Sex: Female

DRUGS (2)
  1. STRENSIQ [Suspect]
     Active Substance: ASFOTASE ALFA
     Indication: HYPOPHOSPHATASIA
     Dosage: UNK
     Route: 065
  2. STRENSIQ [Suspect]
     Active Substance: ASFOTASE ALFA
     Dosage: UNK
     Route: 065

REACTIONS (14)
  - Pyrexia [Recovered/Resolved]
  - Incorrect dose administered [Unknown]
  - Injection site erythema [Recovering/Resolving]
  - Fall [Unknown]
  - Arthralgia [Unknown]
  - Heart rate increased [Unknown]
  - Injection site swelling [Recovering/Resolving]
  - Dehydration [Unknown]
  - Product formulation issue [Unknown]
  - Erythema [Unknown]
  - Injection site rash [Unknown]
  - Faeces discoloured [Unknown]
  - Frequent bowel movements [Unknown]
  - Injection site urticaria [Unknown]

NARRATIVE: CASE EVENT DATE: 20210702
